FAERS Safety Report 9632458 (Version 1)
Quarter: 2013Q4

REPORT INFORMATION
  Report Type: Spontaneous
  Country: US (occurrence: None)
  Receive Date: 20131018
  Receipt Date: 20131018
  Transmission Date: 20140711
  Serious: No
  Sender: FDA-Public Use
  Company Number: None

PATIENT
  Age: 74 Year
  Sex: Male

DRUGS (1)
  1. SUTENT [Suspect]
     Dosage: QD X21DAYS, 7 OFF
     Route: 048
     Dates: start: 20121102, end: 20131017

REACTIONS (6)
  - Diarrhoea [None]
  - Constipation [None]
  - Fatigue [None]
  - Pain [None]
  - Judgement impaired [None]
  - Mental impairment [None]
